FAERS Safety Report 8165801-5 (Version None)
Quarter: 2012Q1

REPORT INFORMATION
  Report Type: 
  Country: None (occurrence: None)
  Receive Date: 20120223
  Receipt Date: 20120223
  Transmission Date: 20120608
  Serious: No
  Sender: FDA-Public Use
  Company Number: None

PATIENT
  Sex: Male
  Weight: 118.2 kg

DRUGS (3)
  1. TAXOL [Suspect]
     Dosage: 720 MG
     Dates: end: 20100519
  2. CARBOPLATIN [Suspect]
     Dosage: 1060 MG
     Dates: end: 20100519
  3. ERBITUX [Suspect]
     Dosage: 3600 MG
     Dates: end: 20110215

REACTIONS (4)
  - MYALGIA [None]
  - HYPOAESTHESIA [None]
  - ARTHRALGIA [None]
  - ACTIVITIES OF DAILY LIVING IMPAIRED [None]
